FAERS Safety Report 6025001-1 (Version None)
Quarter: 2008Q4

REPORT INFORMATION
  Report Type: 
  Country: None (occurrence: None)
  Receive Date: 20081231
  Receipt Date: 20081219
  Transmission Date: 20090506
  Serious: Yes (Other)
  Sender: FDA-Public Use
  Company Number: US-ELI_LILLY_AND_COMPANY-US200812005492

PATIENT
  Sex: Male

DRUGS (2)
  1. CYMBALTA [Suspect]
     Dosage: 60 UNK, DAILY (1/D)
     Dates: start: 20080801, end: 20080915
  2. SEROQUEL [Concomitant]
     Indication: BIPOLAR DISORDER
     Dosage: 100 MG, UNK

REACTIONS (6)
  - ALCOHOL ABUSE [None]
  - BLOOD BILIRUBIN INCREASED [None]
  - BLOOD GLUCOSE [None]
  - DIZZINESS [None]
  - GASTROENTERITIS [None]
  - LOSS OF CONSCIOUSNESS [None]
